FAERS Safety Report 18708185 (Version 3)
Quarter: 2022Q3

REPORT INFORMATION
  Report Type: Report from Study
  Country: US (occurrence: US)
  Receive Date: 20210106
  Receipt Date: 20220712
  Transmission Date: 20221026
  Serious: No
  Sender: FDA-Public Use
  Company Number: US-TAKEDA-2021TUS000513

PATIENT
  Age: 40 Year
  Sex: Male
  Weight: 83.447 kg

DRUGS (2)
  1. BRIGATINIB [Suspect]
     Active Substance: BRIGATINIB
     Indication: Lung neoplasm malignant
     Dosage: 180 MILLIGRAM, QD
     Route: 048
     Dates: start: 202012
  2. BRIGATINIB [Suspect]
     Active Substance: BRIGATINIB
     Indication: Bronchial neoplasm

REACTIONS (10)
  - Lung disorder [Unknown]
  - Chills [Recovered/Resolved]
  - Hypoaesthesia [Unknown]
  - Night sweats [Unknown]
  - Dyspepsia [Recovered/Resolved]
  - Paraesthesia [Unknown]
  - Headache [Unknown]
  - Pruritus [Unknown]
  - Dry skin [Unknown]
  - Pyrexia [Unknown]

NARRATIVE: CASE EVENT DATE: 20201231
